FAERS Safety Report 10637965 (Version 1)
Quarter: 2014Q4

REPORT INFORMATION
  Report Type: Spontaneous
  Country: US (occurrence: None)
  Receive Date: 20141121
  Receipt Date: 20141121
  Transmission Date: 20150529
  Serious: No
  Sender: FDA-Public Use
  Company Number: 163-10004-14082675

PATIENT
  Age: 75 Year
  Sex: Female

DRUGS (9)
  1. PREDNISONE (PREDNISONE) (UNKNOWN) [Concomitant]
     Active Substance: PREDNISONE
  2. BENTYL (DICYCLOVERINE HYDROCHLORIDE) (UNKNOWN) [Concomitant]
  3. LEXAPRO (ESCITALOPRAM OXALATE) (UNKNOWN) [Concomitant]
  4. METOPROLOL (METOPROLOL) (UNKNOWN) [Concomitant]
  5. NUVIGIL (ARMODAFINIL) (UNKNOWN) [Concomitant]
  6. OTEZLA [Suspect]
     Active Substance: APREMILAST
     Indication: PSORIATIC ARTHROPATHY
     Dosage: 60 MG, 2 IN 1 D, PO
     Route: 048
     Dates: start: 20140715, end: 20140808
  7. DIOVAN HCT (CO-DIOVAN) (UNKNOWN) [Concomitant]
  8. CYMBALTA (DULOXETINE HYDROCHLORIDE) (UNKNOWN) [Concomitant]
  9. SYNTHROID (LEVOTHYROXINE SODIUM) (UNKNOWN) [Concomitant]

REACTIONS (2)
  - Nausea [None]
  - Abdominal discomfort [None]

NARRATIVE: CASE EVENT DATE: 20140715
